FAERS Safety Report 10041804 (Version 1)
Quarter: 2014Q1

REPORT INFORMATION
  Report Type: Spontaneous
  Country: US (occurrence: US)
  Receive Date: 20140327
  Receipt Date: 20140327
  Transmission Date: 20141002
  Serious: Yes (Hospitalization)
  Sender: FDA-Public Use
  Company Number: PHHY2014US034268

PATIENT
  Age: 55 Year
  Sex: Female

DRUGS (7)
  1. PREDNISONE [Suspect]
     Indication: IMMUNE THROMBOCYTOPENIC PURPURA
     Dosage: 80 MG, UNK
  2. PREDNISONE [Suspect]
     Dosage: 60 MG, UNK
  3. ELTROMBOPAG [Suspect]
     Dosage: 25 MG, UNK
     Route: 048
  4. ELTROMBOPAG [Suspect]
     Dosage: 50 MG, UNK
  5. ROMIPLOSTIM [Concomitant]
     Dosage: 1 UG/KG,WEEKLY
     Route: 065
     Dates: start: 201011
  6. ROMIPLOSTIM [Concomitant]
     Dosage: 4 UG/KG, WEEKLY
  7. ROMIPLOSTIM [Concomitant]
     Dosage: 250 UG, WEEKLY

REACTIONS (6)
  - Thrombocytopenia [Recovered/Resolved]
  - Cavernous sinus thrombosis [Recovered/Resolved]
  - Intracranial haematoma [Recovered/Resolved]
  - Headache [Recovered/Resolved]
  - Nausea [Recovered/Resolved]
  - Vomiting [Recovered/Resolved]
